FAERS Safety Report 7119248-0 (Version None)
Quarter: 2010Q4

REPORT INFORMATION
  Report Type: 
  Country: None (occurrence: None)
  Receive Date: 20101123
  Receipt Date: 20101102
  Transmission Date: 20110411
  Serious: Yes (Other)
  Sender: FDA-Public Use
  Company Number: US-BAYER-201023664BCC

PATIENT
  Age: 48 Year
  Sex: Female
  Weight: 82 kg

DRUGS (2)
  1. ALEVE [Suspect]
     Indication: PRODUCT USED FOR UNKNOWN INDICATION
     Dosage: BOTTLE COUNT 100S
     Route: 048
     Dates: start: 20100401
  2. ALEVE [Suspect]
     Dosage: TOTAL DAILY DOSE: 220 MG  UNIT DOSE: 220 MG
     Route: 048
     Dates: start: 20100913, end: 20100913

REACTIONS (6)
  - ANAPHYLACTIC SHOCK [None]
  - DYSPNOEA [None]
  - FATIGUE [None]
  - PRURITUS [None]
  - SWELLING FACE [None]
  - URTICARIA [None]
